FAERS Safety Report 6619237-6 (Version None)
Quarter: 2010Q1

REPORT INFORMATION
  Report Type: 
  Country: None (occurrence: None)
  Receive Date: 20100301
  Receipt Date: 20100218
  Transmission Date: 20100710
  Serious: Yes (Other)
  Sender: FDA-Public Use
  Company Number: 231733J09USA

PATIENT
  Age: 41 Year
  Sex: Female
  Weight: 72 kg

DRUGS (7)
  1. REBIF [Suspect]
     Indication: MULTIPLE SCLEROSIS
     Dosage: 44 MCG, 3 IN 1 WEEKS, SUBCUTANEOUS
     Route: 058
     Dates: start: 20051111
  2. EFFEXOR [Suspect]
     Indication: DEPRESSION
     Dosage: 375 MG, 1 IN 1 DAYS, ORAL
     Route: 048
     Dates: start: 20031008, end: 20090818
  3. IRON (IRON) [Concomitant]
  4. ASCORBIC ACID [Concomitant]
  5. MINOCYCLINE HCL [Concomitant]
  6. VITAMIN D [Concomitant]
  7. VITAMIN B12 [Concomitant]

REACTIONS (5)
  - AURA [None]
  - EPILEPSY [None]
  - GRAND MAL CONVULSION [None]
  - LOSS OF CONSCIOUSNESS [None]
  - PHOTOPSIA [None]
